FAERS Safety Report 23916369 (Version 1)
Quarter: 2024Q2

REPORT INFORMATION
  Report Type: Report from Study
  Country: US (occurrence: US)
  Receive Date: 20240529
  Receipt Date: 20240529
  Transmission Date: 20240715
  Serious: Yes (Hospitalization, Other)
  Sender: FDA-Public Use
  Company Number: US-BIOVITRUM-2024-US-006329

PATIENT
  Age: 57 Year
  Sex: Female

DRUGS (1)
  1. KINERET [Suspect]
     Active Substance: ANAKINRA
     Indication: Rheumatoid arthritis
     Dosage: DAILY
     Route: 058
     Dates: start: 20240404, end: 202405

REACTIONS (7)
  - Intracranial aneurysm [Unknown]
  - Blood pressure increased [Unknown]
  - Pain [Unknown]
  - Product dose omission issue [Unknown]
  - Inflammation [Unknown]
  - Anxiety [Unknown]
  - Drug ineffective [Unknown]
